FAERS Safety Report 17036566 (Version 2)
Quarter: 2019Q4

REPORT INFORMATION
  Report Type: Spontaneous
  Country: US (occurrence: US)
  Receive Date: 20191115
  Receipt Date: 20191230
  Transmission Date: 20200122
  Serious: No
  Sender: FDA-Public Use
  Company Number: US-ASTRAZENECA-2019SF22495

PATIENT
  Age: 27023 Day
  Sex: Female

DRUGS (2)
  1. BYETTA [Suspect]
     Active Substance: EXENATIDE
     Route: 065
  2. BYDUREON BCISE [Suspect]
     Active Substance: EXENATIDE
     Route: 065
     Dates: start: 20191017

REACTIONS (6)
  - Nausea [Unknown]
  - Injection site haemorrhage [Unknown]
  - Diabetes mellitus inadequate control [Unknown]
  - Wrong technique in device usage process [Unknown]
  - Thyroid mass [Unknown]
  - Device issue [Unknown]

NARRATIVE: CASE EVENT DATE: 20191017
